FAERS Safety Report 10588165 (Version 1)
Quarter: 2014Q4

REPORT INFORMATION
  Report Type: Spontaneous
  Country: US (occurrence: US)
  Receive Date: 20141117
  Receipt Date: 20141117
  Transmission Date: 20150529
  Serious: Yes (Hospitalization, Other)
  Sender: FDA-Public Use
  Company Number: US-RB PHARMACEUTICALS LIMITED-RB-73289-2014

PATIENT
  Age: 40 Year
  Sex: Female

DRUGS (4)
  1. SUBOXONE [Suspect]
     Active Substance: BUPRENORPHINE HYDROCHLORIDE\NALOXONE HYDROCHLORIDE
     Indication: DRUG DEPENDENCE
     Dosage: 8 MG, TID
     Route: 060
  2. XANAX [Concomitant]
     Active Substance: ALPRAZOLAM
     Indication: SEIZURE
     Dosage: UNKNOWN
     Route: 048
  3. BENZTROPINE [Concomitant]
     Active Substance: BENZTROPINE
     Indication: HALLUCINATION
     Dosage: UNKNOWN
     Route: 048
  4. HALDOL [Concomitant]
     Active Substance: HALOPERIDOL
     Indication: HALLUCINATION
     Dosage: UNKNOWN
     Route: 048

REACTIONS (12)
  - Pre-eclampsia [Recovered/Resolved]
  - Blood pressure increased [Recovered/Resolved]
  - Diarrhoea [Not Recovered/Not Resolved]
  - Abdominal pain upper [Recovered/Resolved]
  - Drug withdrawal syndrome [Recovered/Resolved]
  - Pain [Recovered/Resolved]
  - Dyspnoea [Recovered/Resolved]
  - Pulmonary oedema [Recovered/Resolved]
  - Drug prescribing error [Not Recovered/Not Resolved]
  - Lethargy [Recovered/Resolved]
  - Maternal exposure during pregnancy [Recovered/Resolved]
  - Oedema peripheral [Recovered/Resolved]

NARRATIVE: CASE EVENT DATE: 201305
